FAERS Safety Report 13282175 (Version 1)
Quarter: 2017Q1

REPORT INFORMATION
  Report Type: Spontaneous
  Country: BR (occurrence: BR)
  Receive Date: 20170301
  Receipt Date: 20170301
  Transmission Date: 20170428
  Serious: Yes (Other)
  Sender: FDA-Public Use
  Company Number: BR-ROCHE-1899600

PATIENT
  Age: 18 Year
  Sex: Male

DRUGS (2)
  1. ESCITALOPRAM OXALATE. [Suspect]
     Active Substance: ESCITALOPRAM OXALATE
     Indication: DEPRESSION
     Route: 065
  2. RIVOTRIL [Suspect]
     Active Substance: CLONAZEPAM
     Indication: GENERALISED ANXIETY DISORDER
     Route: 065

REACTIONS (5)
  - Feeling of despair [Unknown]
  - Loss of consciousness [Recovered/Resolved]
  - Suicide attempt [Unknown]
  - Overdose [Unknown]
  - Mood swings [Unknown]

NARRATIVE: CASE EVENT DATE: 20170226
